FAERS Safety Report 11295061 (Version 1)
Quarter: 2015Q3

REPORT INFORMATION
  Report Type: Spontaneous
  Country: US (occurrence: None)
  Receive Date: 20150722
  Receipt Date: 20150722
  Transmission Date: 20151125
  Serious: Yes (Hospitalization)
  Sender: FDA-Public Use
  Company Number: None

PATIENT
  Age: 77 Year
  Sex: Female
  Weight: 52 kg

DRUGS (2)
  1. ISOSULFAN BLUE 15 MG/5ML 1% INJECTION MYLAN [Suspect]
     Active Substance: ISOSULFAN BLUE
     Indication: BREAST CONSERVING SURGERY
     Dosage: 3 MG/ML, VIAL
     Route: 058
     Dates: start: 20150708, end: 20150708
  2. ISOSULFAN BLUE 15 MG/5ML 1% INJECTION MYLAN [Suspect]
     Active Substance: ISOSULFAN BLUE
     Indication: BIOPSY
     Dosage: 3 MG/ML, VIAL
     Route: 058
     Dates: start: 20150708, end: 20150708

REACTIONS (1)
  - Anaphylactic reaction [None]

NARRATIVE: CASE EVENT DATE: 20150708
